FAERS Safety Report 16896024 (Version 10)
Quarter: 2020Q3

REPORT INFORMATION
  Report Type: Report from Study
  Country: US (occurrence: US)
  Receive Date: 20191008
  Receipt Date: 20200827
  Transmission Date: 20201102
  Serious: Yes (Hospitalization, Other)
  Sender: FDA-Public Use
  Company Number: US-CLOVIS ONCOLOGY-CLO-2019-002017

PATIENT
  Age: 63 Year
  Sex: Female

DRUGS (3)
  1. RUBRACA [Suspect]
     Active Substance: RUCAPARIB CAMSYLATE
     Indication: OVARIAN CANCER
     Dosage: 400 MG, BID
     Route: 048
     Dates: start: 20190921, end: 202006
  2. RUBRACA [Suspect]
     Active Substance: RUCAPARIB CAMSYLATE
     Dosage: 400 MG, BID
     Route: 048
     Dates: start: 202004, end: 202006
  3. RUBRACA [Suspect]
     Active Substance: RUCAPARIB CAMSYLATE
     Dosage: 200 MG AM/400 MG PM
     Route: 048
     Dates: start: 202006

REACTIONS (23)
  - Tremor [Unknown]
  - White blood cell count decreased [Not Recovered/Not Resolved]
  - Rib fracture [Unknown]
  - Surgery [Unknown]
  - Constipation [Not Recovered/Not Resolved]
  - Fatigue [Recovering/Resolving]
  - Amnesia [Not Recovered/Not Resolved]
  - Decreased appetite [Unknown]
  - Carbohydrate antigen 125 increased [Recovering/Resolving]
  - Feeling abnormal [Unknown]
  - Nausea [Unknown]
  - Syphilis [Unknown]
  - Loss of consciousness [Unknown]
  - Asthenia [Recovering/Resolving]
  - Hot flush [Unknown]
  - Blood sodium decreased [Not Recovered/Not Resolved]
  - Headache [Not Recovered/Not Resolved]
  - Dizziness [Not Recovered/Not Resolved]
  - Abdominal distension [Recovering/Resolving]
  - Sjogren^s syndrome [Unknown]
  - Blood calcium decreased [Not Recovered/Not Resolved]
  - Faecaloma [Unknown]
  - Blood magnesium decreased [Not Recovered/Not Resolved]

NARRATIVE: CASE EVENT DATE: 201909
